FAERS Safety Report 6283153-2 (Version None)
Quarter: 2009Q3

REPORT INFORMATION
  Report Type: 
  Country: None (occurrence: None)
  Receive Date: 20090724
  Receipt Date: 20090717
  Transmission Date: 20100115
  Serious: Yes (Life-Threatening, Other)
  Sender: FDA-Public Use
  Company Number: B0556575A

PATIENT
  Sex: Male

DRUGS (8)
  1. KIVEXA [Suspect]
     Indication: HIV INFECTION
     Route: 048
     Dates: start: 20070121
  2. LOPINAVIR [Concomitant]
     Indication: HIV INFECTION
     Route: 048
  3. MALOCIDE [Concomitant]
     Indication: CEREBRAL TOXOPLASMOSIS
     Dosage: 50MG PER DAY
     Route: 048
     Dates: start: 20060620
  4. DALACINE [Concomitant]
     Indication: CEREBRAL TOXOPLASMOSIS
     Dosage: 2400MG PER DAY
     Route: 048
     Dates: start: 20060620
  5. OSFOLATE [Concomitant]
     Indication: CEREBRAL TOXOPLASMOSIS
     Dosage: 25MG PER DAY
     Route: 048
     Dates: start: 20060620
  6. STILNOX [Concomitant]
     Indication: INSOMNIA
     Route: 048
     Dates: start: 20061024
  7. KEPPRA [Concomitant]
     Indication: EPILEPSY
     Dosage: 1G TWICE PER DAY
     Route: 048
     Dates: start: 20061129
  8. URBANYL [Concomitant]
     Indication: EPILEPSY
     Dosage: 5MG THREE TIMES PER DAY
     Route: 048
     Dates: start: 20070121

REACTIONS (2)
  - ANGINA UNSTABLE [None]
  - CORONARY ARTERY STENOSIS [None]
